FAERS Safety Report 15879421 (Version 1)
Quarter: 2019Q1

REPORT INFORMATION
  Report Type: Spontaneous
  Country: CA (occurrence: CA)
  Receive Date: 20190128
  Receipt Date: 20190128
  Transmission Date: 20190417
  Serious: Yes (Other)
  Sender: FDA-Public Use
  Company Number: CA-TEVA-2019-CA-1005611

PATIENT
  Age: 9 Year
  Sex: Female

DRUGS (9)
  1. PREDNISONE. [Suspect]
     Active Substance: PREDNISONE
     Indication: CHRONIC SPONTANEOUS URTICARIA
     Route: 065
  2. PREDNISONE. [Suspect]
     Active Substance: PREDNISONE
     Route: 058
  3. PERIOGARD [Suspect]
     Active Substance: CHLORHEXIDINE GLUCONATE
     Indication: PRODUCT USED FOR UNKNOWN INDICATION
     Route: 065
  4. REACTINE [CETIRIZINE HYDROCHLORIDE] [Concomitant]
     Active Substance: CETIRIZINE HYDROCHLORIDE
  5. PREDNISONE. [Suspect]
     Active Substance: PREDNISONE
     Route: 058
  6. AERIUS [Concomitant]
  7. BENADRYL [Concomitant]
     Active Substance: DIPHENHYDRAMINE HYDROCHLORIDE
  8. HYDROXYZINE [Concomitant]
     Active Substance: HYDROXYZINE HYDROCHLORIDE
  9. HYDROCORTISONE. [Concomitant]
     Active Substance: HYDROCORTISONE

REACTIONS (21)
  - Drug ineffective [Unknown]
  - Mobility decreased [Unknown]
  - Pruritus [Unknown]
  - Skin lesion [Unknown]
  - Eczema [Unknown]
  - Insomnia [Unknown]
  - Urticaria [Unknown]
  - Anxiety [Unknown]
  - Irritability [Unknown]
  - Emotional distress [Unknown]
  - Erythema [Unknown]
  - Pain [Unknown]
  - Wound secretion [Unknown]
  - Dry skin [Unknown]
  - Dermatitis [Unknown]
  - Weight increased [Unknown]
  - Dermatitis exfoliative generalised [Unknown]
  - Malaise [Unknown]
  - Oedema [Unknown]
  - Sensitivity to weather change [Unknown]
  - Staphylococcal infection [Unknown]
